FAERS Safety Report 5819484-7 (Version None)
Quarter: 2008Q3

REPORT INFORMATION
  Report Type: 
  Country: None (occurrence: None)
  Receive Date: 20080723
  Receipt Date: 20080716
  Transmission Date: 20090109
  Serious: Yes (Other)
  Sender: FDA-Public Use
  Company Number: US-JNJFOC-20080704473

PATIENT
  Age: 43 Year
  Sex: Male

DRUGS (9)
  1. TOPAMAX [Suspect]
     Indication: MEDICATION ERROR
     Route: 048
  2. TRAZODONE HCL [Concomitant]
     Indication: SLEEP DISORDER
     Route: 048
  3. ALPRAZOLAM [Concomitant]
     Indication: DRUG USE FOR UNKNOWN INDICATION
  4. EFFEXOR XR [Concomitant]
     Indication: DRUG USE FOR UNKNOWN INDICATION
  5. FEXOFENADINE [Concomitant]
     Indication: MULTIPLE ALLERGIES
  6. TOPROL-XL [Concomitant]
     Indication: CARDIAC FAILURE CONGESTIVE
     Route: 048
  7. VICODIN [Concomitant]
     Indication: ANALGESIA
     Route: 048
  8. SIMAVASTATIN [Concomitant]
     Indication: HYPERLIPIDAEMIA
     Route: 048
  9. FUROSEMIDE [Concomitant]
     Indication: CARDIAC FAILURE CONGESTIVE
     Route: 048

REACTIONS (6)
  - DISORIENTATION [None]
  - DIZZINESS [None]
  - DRUG DISPENSING ERROR [None]
  - DYSPNOEA [None]
  - ROAD TRAFFIC ACCIDENT [None]
  - WRONG DRUG ADMINISTERED [None]
